FAERS Safety Report 6146943-2 (Version None)
Quarter: 2009Q2

REPORT INFORMATION
  Report Type: 
  Country: None (occurrence: None)
  Receive Date: 20090407
  Receipt Date: 20090403
  Transmission Date: 20091009
  Serious: Yes (Death)
  Sender: FDA-Public Use
  Company Number: US-PFIZER INC-2009193626

PATIENT
  Sex: Female

DRUGS (3)
  1. CELEBREX [Suspect]
  2. NORVASC [Suspect]
  3. ZOLOFT [Suspect]

REACTIONS (1)
  - DEATH [None]
